FAERS Safety Report 8990265 (Version 1)
Quarter: 2012Q4

REPORT INFORMATION
  Report Type: 
  Country: US (occurrence: US)
  Receive Date: 20121228
  Receipt Date: 20121228
  Transmission Date: 20130627
  Serious: No
  Sender: FDA-Public Use
  Company Number: US-ASTRAZENECA-2001UW13468

PATIENT
  Age: 49 Year
  Sex: Female
  Weight: 62.6 kg

DRUGS (2)
  1. SEROQUEL [Suspect]
     Indication: OBSESSIVE-COMPULSIVE DISORDER
     Route: 048
  2. SEROQUEL [Suspect]
     Indication: OBSESSIVE-COMPULSIVE DISORDER
     Dosage: GENERIC
     Route: 048

REACTIONS (3)
  - Mental disorder [Unknown]
  - Weight increased [Unknown]
  - Drug ineffective [Unknown]
